FAERS Safety Report 16808302 (Version 1)
Quarter: 2019Q3

REPORT INFORMATION
  Report Type: Spontaneous
  Country: SE (occurrence: SE)
  Receive Date: 20190916
  Receipt Date: 20190916
  Transmission Date: 20191005
  Serious: Yes (Hospitalization)
  Sender: FDA-Public Use
  Company Number: SE-TEVA-2019-SE-1106420

PATIENT
  Sex: Female

DRUGS (7)
  1. LERGIGAN (PROMETHAZINE HYDROCHLORIDE) [Suspect]
     Active Substance: PROMETHAZINE HYDROCHLORIDE
     Route: 048
     Dates: start: 201904, end: 201904
  2. PROPAVAN [Suspect]
     Active Substance: PROPIOMAZINE
     Route: 048
     Dates: start: 201904, end: 201904
  3. ZOPICLONE [Suspect]
     Active Substance: ZOPICLONE
     Route: 048
     Dates: start: 201904, end: 201904
  4. MELATONIN [Suspect]
     Active Substance: MELATONIN
     Route: 048
     Dates: start: 201904, end: 201904
  5. LAMOTRIGINE. [Suspect]
     Active Substance: LAMOTRIGINE
     Route: 048
     Dates: start: 201904, end: 201904
  6. PARAFLEX [Suspect]
     Active Substance: CHLORZOXAZONE
     Route: 048
     Dates: start: 201904, end: 201904
  7. ALIMEMAZINE [Suspect]
     Active Substance: TRIMEPRAZINE
     Route: 048
     Dates: start: 201904, end: 201904

REACTIONS (3)
  - Intentional overdose [Unknown]
  - Depressed level of consciousness [Unknown]
  - Intentional self-injury [Unknown]

NARRATIVE: CASE EVENT DATE: 201904
